FAERS Safety Report 4331447-X (Version None)
Quarter: 2004Q1

REPORT INFORMATION
  Report Type: 
  Country: None (occurrence: None)
  Receive Date: 20040329
  Receipt Date: 20040316
  Transmission Date: 20041129
  Serious: Yes (Death, Hospitalization)
  Sender: FDA-Public Use
  Company Number: USA-2004-0013881

PATIENT
  Age: 76 Year
  Sex: Male
  Weight: 82.8 kg

DRUGS (8)
  1. MORPHINE SULFATE [Suspect]
     Indication: CHEST PAIN
     Dosage: 2 MG, PRN, INTRAVENOUS
     Route: 042
  2. ESMOLOL (ESMOLOL) INJECTABLE [Suspect]
     Indication: TACHYCARDIA
     Dosage: 250 MG, UNK, INTRAVENOUS
     Route: 042
  3. LORAZEPAM [Concomitant]
  4. NITROGLYCERIN ^A.L.^ (GLYCERYL TRINITRATE) [Concomitant]
  5. HALOPERIDOL [Concomitant]
  6. THIAMINE (THIAMINE) [Concomitant]
  7. PIPERACILLIN SODIOUM W/TAZOBACTAM SODIUM (PIPERACILLIN SODIUM, TAZOBAC [Concomitant]
  8. ANGIOMAX [Concomitant]

REACTIONS (18)
  - ACUTE CORONARY SYNDROME [None]
  - AGITATION [None]
  - ALCOHOL USE [None]
  - ALCOHOL WITHDRAWAL SYNDROME [None]
  - ASPIRATION [None]
  - BRADYCARDIA [None]
  - CONFUSIONAL STATE [None]
  - DISORIENTATION [None]
  - ELECTROMECHANICAL DISSOCIATION [None]
  - GENERAL PHYSICAL HEALTH DETERIORATION [None]
  - HYPOTENSION [None]
  - HYPOXIA [None]
  - LUNG INFILTRATION [None]
  - MYOCARDIAL INFARCTION [None]
  - RESPIRATORY ACIDOSIS [None]
  - RESPIRATORY FAILURE [None]
  - VENTRICULAR FIBRILLATION [None]
  - VENTRICULAR TACHYCARDIA [None]
